FAERS Safety Report 7387037-8 (Version None)
Quarter: 2011Q1

REPORT INFORMATION
  Report Type: 
  Country: None (occurrence: None)
  Receive Date: 20110331
  Receipt Date: 20101005
  Transmission Date: 20110831
  Serious: Yes (Hospitalization, Other)
  Sender: FDA-Public Use
  Company Number: US-BAYER-201019948NA

PATIENT
  Sex: Female
  Weight: 81.633 kg

DRUGS (5)
  1. PRENATAL VITAMINS [VIT C,VIT H,MIN NOS,VIT PP,RETINOL,VIT E,VIT B NOS, [Concomitant]
     Dosage: 1 DF, QD
  2. YAZ [Suspect]
     Indication: MENSTRUATION IRREGULAR
  3. YAZ [Suspect]
     Indication: ACNE
     Dosage: UNK
     Route: 048
     Dates: start: 20071101, end: 20080201
  4. ADVIL [IBUPROFEN] [Concomitant]
     Indication: PAIN
     Dosage: UNK UNK, PRN
  5. YAZ [Suspect]
     Indication: PREMENSTRUAL SYNDROME

REACTIONS (6)
  - PAIN [None]
  - PANCREATITIS [None]
  - CHOLECYSTECTOMY [None]
  - CHOLECYSTITIS CHRONIC [None]
  - GALLBLADDER INJURY [None]
  - GALLBLADDER CHOLESTEROLOSIS [None]
